FAERS Safety Report 5385313-1 (Version None)
Quarter: 2007Q3

REPORT INFORMATION
  Report Type: 
  Country: None (occurrence: None)
  Receive Date: 20070709
  Receipt Date: 20070709
  Transmission Date: 20080115
  Serious: Yes (Death)
  Sender: FDA-Public Use
  Company Number: None

PATIENT
  Sex: Male
  Weight: 55.7924 kg

DRUGS (2)
  1. ALIMTA [Suspect]
     Indication: SQUAMOUS CELL CARCINOMA
     Dosage: EVERY 3 WEEKS
  2. AVASTIN [Suspect]

REACTIONS (4)
  - BLOOD CULTURE POSITIVE [None]
  - NEUTROPENIA [None]
  - PNEUMONIA ASPIRATION [None]
  - SEPSIS [None]
